FAERS Safety Report 22186279 (Version 2)
Quarter: 2023Q2

REPORT INFORMATION
  Report Type: Spontaneous
  Country: DZ (occurrence: DZ)
  Receive Date: 20230407
  Receipt Date: 20230523
  Transmission Date: 20230721
  Serious: Yes (Other)
  Sender: FDA-Public Use
  Company Number: DZ-drreddys-SPO/ALG/23/0163307

PATIENT
  Age: 89 Year
  Sex: Male
  Weight: 63 kg

DRUGS (3)
  1. LENALIDOMIDE [Suspect]
     Active Substance: LENALIDOMIDE
     Indication: Product used for unknown indication
     Route: 048
  2. ACYCLOVIR [Concomitant]
     Active Substance: ACYCLOVIR
     Indication: Viral infection
     Route: 048
     Dates: start: 20221129, end: 20230326
  3. COTRIMOXAZOLE [Concomitant]
     Active Substance: SULFAMETHOXAZOLE\TRIMETHOPRIM
     Indication: Bacterial infection
     Dosage: 800MG/160
     Route: 048
     Dates: start: 20221129, end: 20230326

REACTIONS (1)
  - Colon neoplasm [Not Recovered/Not Resolved]
